FAERS Safety Report 17043750 (Version 2)
Quarter: 2019Q4

REPORT INFORMATION
  Report Type: Spontaneous
  Country: IR (occurrence: IR)
  Receive Date: 20191118
  Receipt Date: 20191126
  Transmission Date: 20200122
  Serious: Yes (Life-Threatening, Hospitalization)
  Sender: FDA-Public Use
  Company Number: IR-PFIZER INC-2019491631

PATIENT
  Age: 29 Year
  Sex: Male

DRUGS (6)
  1. CIPROFLOXACIN. [Concomitant]
     Active Substance: CIPROFLOXACIN
     Indication: PROPHYLAXIS
     Dosage: 500 MG, 2X/DAY
  2. CYTODROX [Concomitant]
     Indication: CYTOREDUCTIVE SURGERY
     Dosage: 1 G, 4X/DAY
  3. VONAFEND (VORICONAZOLE) [Interacting]
     Active Substance: VORICONAZOLE
     Indication: ANTIFUNGAL PROPHYLAXIS
     Dosage: 200 MG, 2X/DAY (200 MG TABLET)
  4. ADRIAMYCIN [Interacting]
     Active Substance: DOXORUBICIN HYDROCHLORIDE
     Indication: ACUTE MYELOID LEUKAEMIA
     Dosage: 80 MG, CYCLIC (80 MG DAILY FOR THREE DAYS)
  5. CYTOSAR [Suspect]
     Active Substance: CYTARABINE
     Indication: ACUTE MYELOID LEUKAEMIA
     Dosage: 300 MG, CYCLIC (300 MG DAILY FOR SEVEN DAYS)
  6. ACICLOVIR [Concomitant]
     Active Substance: ACYCLOVIR
     Indication: PROPHYLAXIS
     Dosage: 400 MG, 2X/DAY (400 MG TABLET)

REACTIONS (3)
  - Palmar-plantar erythrodysaesthesia syndrome [Recovered/Resolved]
  - Drug interaction [Unknown]
  - Febrile neutropenia [Recovered/Resolved]
